FAERS Safety Report 4393242-5 (Version None)
Quarter: 2004Q3

REPORT INFORMATION
  Report Type: 
  Country: None (occurrence: None)
  Receive Date: 20040701
  Receipt Date: 20040610
  Transmission Date: 20050211
  Serious: Yes (Hospitalization)
  Sender: FDA-Public Use
  Company Number: 04H-062-0263639-00

PATIENT
  Age: 37 Year
  Sex: Female

DRUGS (10)
  1. HALOTHANE [Suspect]
     Indication: ANAESTHESIA
  2. DESFLURANE [Suspect]
     Indication: MAINTENANCE OF ANAESTHESIA
  3. ISOFLURANE [Suspect]
     Indication: ANAESTHESIA
  4. NITROUS OXIDE [Concomitant]
  5. ETOMIDATE [Concomitant]
  6. ALCURONIUM [Concomitant]
  7. DIPYRONE TAB [Concomitant]
  8. PIRITRAMIDE [Concomitant]
  9. OXYGEN [Concomitant]
  10. FENTANYL [Concomitant]

REACTIONS (2)
  - DRUG HYPERSENSITIVITY [None]
  - HEPATOTOXICITY [None]
